FAERS Safety Report 9667639 (Version 1)
Quarter: 2013Q4

REPORT INFORMATION
  Report Type: Spontaneous
  Country: GB (occurrence: None)
  Receive Date: 20131031
  Receipt Date: 20131031
  Transmission Date: 20140711
  Serious: Yes (Hospitalization)
  Sender: FDA-Public Use
  Company Number: AUR-APL-2013-08956

PATIENT
  Age: 94 Year
  Sex: Male

DRUGS (12)
  1. ALENDRONIC ACID [Suspect]
     Route: 048
  2. WARFARIN [Suspect]
     Route: 048
     Dates: start: 20131007
  3. ATENOLOL [Concomitant]
  4. BUMETANIDE [Concomitant]
  5. CALCIUM CARBONATE [Concomitant]
  6. CO-CODAMOL (PANADEINE CO) [Concomitant]
  7. FERROUS FUMARATE [Concomitant]
  8. GTN (GLYCERYL TRINITRATE) [Concomitant]
  9. LACTULOSE [Concomitant]
  10. OMEPRAZOLE [Concomitant]
  11. RAMIPRIL [Concomitant]
  12. SIMVASTATIN [Concomitant]

REACTIONS (5)
  - Gastrointestinal haemorrhage [None]
  - Haematemesis [None]
  - Hiatus hernia [None]
  - Melaena [None]
  - Varices oesophageal [None]
